FAERS Safety Report 5771802-4 (Version None)
Quarter: 2008Q2

REPORT INFORMATION
  Report Type: 
  Country: None (occurrence: None)
  Receive Date: 20080612
  Receipt Date: 20080612
  Transmission Date: 20081010
  Serious: Yes (Hospitalization)
  Sender: FDA-Public Use
  Company Number: None

PATIENT
  Age: 57 Year
  Sex: Male
  Weight: 70.76 kg

DRUGS (1)
  1. SORAFENIB [Suspect]
     Indication: HEPATIC NEOPLASM MALIGNANT
     Dosage: 400 MG BID PO
     Route: 048
     Dates: start: 20080513

REACTIONS (6)
  - ASTHENIA [None]
  - FEBRILE NEUTROPENIA [None]
  - MALAISE [None]
  - MOUTH ULCERATION [None]
  - THROMBOCYTOPENIA [None]
  - ULCER [None]
